FAERS Safety Report 7624437-2 (Version None)
Quarter: 2011Q3

REPORT INFORMATION
  Report Type: 
  Country: None (occurrence: None)
  Receive Date: 20110720
  Receipt Date: 20110717
  Transmission Date: 20111222
  Serious: Yes (Hospitalization)
  Sender: FDA-Public Use
  Company Number: IT-AMGEN-ITACT2011036517

PATIENT
  Age: 73 Year
  Sex: Male
  Weight: 70 kg

DRUGS (6)
  1. IRINOTECAN HCL [Concomitant]
     Dosage: 216 MG, UNK
     Dates: end: 20110520
  2. LANSOPRAZOLE [Concomitant]
     Dosage: 30 MG, UNK
     Dates: start: 20110124
  3. OXALIPLATIN [Concomitant]
     Dosage: 153 MG, UNK
     Dates: end: 20110520
  4. LEUCOVORIN CALCIUM [Concomitant]
     Dosage: 360 MG, UNK
     Dates: end: 20110520
  5. FLUOROURACIL [Concomitant]
     Dosage: 4320 MG, UNK
     Dates: end: 20110520
  6. PANITUMUMAB [Suspect]
     Indication: COLORECTAL CANCER METASTATIC
     Dosage: 390 MG, UNK

REACTIONS (5)
  - DIARRHOEA [None]
  - THROMBOCYTOPENIA [None]
  - ASTHENIA [None]
  - NEUTROPENIA [None]
  - STOMATITIS [None]
